FAERS Safety Report 10005605 (Version 2)
Quarter: 2014Q2

REPORT INFORMATION
  Report Type: Spontaneous
  Country: US (occurrence: US)
  Receive Date: 20140313
  Receipt Date: 20140504
  Transmission Date: 20141212
  Serious: No
  Sender: FDA-Public Use
  Company Number: US-009507513-1403USA002975

PATIENT
  Age: 16 Year
  Sex: Female
  Weight: 53.97 kg

DRUGS (2)
  1. NEXPLANON [Suspect]
     Indication: CONTRACEPTION
     Dosage: ONE ROD
     Route: 059
     Dates: start: 201308, end: 20140305
  2. NEXPLANON [Suspect]
     Dosage: ONE ROD
     Route: 059
     Dates: start: 20140305

REACTIONS (5)
  - Implant site pain [Recovered/Resolved]
  - Implant site scar [Unknown]
  - Device deployment issue [Recovered/Resolved with Sequelae]
  - Device kink [Recovered/Resolved with Sequelae]
  - Device breakage [Recovered/Resolved with Sequelae]
